FAERS Safety Report 4357474-4 (Version None)
Quarter: 2004Q2

REPORT INFORMATION
  Report Type: 
  Country: None (occurrence: None)
  Receive Date: 20040511
  Receipt Date: 20040511
  Transmission Date: 20050107
  Serious: Yes (Life-Threatening, Hospitalization)
  Sender: FDA-Public Use
  Company Number: None

PATIENT
  Age: 89 Year
  Sex: Female
  Weight: 48.5 kg

DRUGS (11)
  1. ALDACTAZIDE [Suspect]
     Indication: DIURETIC EFFECT
     Dosage: 25/25 ONE PO BID
     Route: 048
  2. ALDACTAZIDE [Suspect]
     Indication: HYPERTENSION
     Dosage: 25/25 ONE PO BID
     Route: 048
  3. PLETAL [Concomitant]
  4. INDERAL [Concomitant]
  5. METAMUCIL-2 [Concomitant]
  6. ASPIRIN [Concomitant]
  7. HALCION [Concomitant]
  8. LISINOPRIL [Concomitant]
  9. SYNTHROID [Concomitant]
  10. ULTRACET [Concomitant]
  11. TIMOLOL MALEATE [Concomitant]

REACTIONS (10)
  - ASTHENIA [None]
  - BLOOD POTASSIUM ABNORMAL [None]
  - BLOOD SODIUM ABNORMAL [None]
  - COMA [None]
  - DIZZINESS [None]
  - FALL [None]
  - FATIGUE [None]
  - MARKEDLY REDUCED DIETARY INTAKE [None]
  - NAUSEA [None]
  - SYNCOPE [None]
